FAERS Safety Report 10723664 (Version 2)
Quarter: 2015Q1

REPORT INFORMATION
  Report Type: Spontaneous
  Country: US (occurrence: None)
  Receive Date: 20150114
  Receipt Date: 20150226
  Transmission Date: 20150721
  Serious: Yes (Hospitalization, Other)
  Sender: FDA-Public Use
  Company Number: 2015010015

PATIENT
  Age: 70 Year
  Sex: Male
  Weight: 102.06 kg

DRUGS (28)
  1. DULCOLAX (DOCUSATE) [Concomitant]
  2. ZOCOR [Concomitant]
     Active Substance: SIMVASTATIN
  3. VITAMIN D (ERGOCALCIFEROL) [Concomitant]
     Active Substance: ERGOCALCIFEROL
  4. ASPIRIN (ACETYLSALICYLIC ACID) [Concomitant]
     Active Substance: ASPIRIN
  5. EUCALYPTUS-PEPPERMINT OIL (EUCALYPTUS GLOBULUS OIL) [Concomitant]
  6. FLUNISOLIDE. [Concomitant]
     Active Substance: FLUNISOLIDE
  7. NPH INSULIN [Suspect]
     Active Substance: INSULIN BEEF
     Indication: DIABETES MELLITUS
     Dosage: 42 UNITS AM AND 32 UNITS PM)
     Route: 058
     Dates: start: 20120109
  8. NOVOLIN R [Suspect]
     Active Substance: INSULIN HUMAN
     Indication: DIABETES MELLITUS
     Dosage: 4 TO 12 UNITS QD
     Route: 058
     Dates: start: 20110901
  9. TYVASO [Suspect]
     Active Substance: TREPROSTINIL
     Indication: PULMONARY ARTERIAL HYPERTENSION
     Dosage: 216 MCG DAILY, INHALATION?
     Route: 055
     Dates: start: 20140604, end: 20140916
  10. ZYLOPRIM (ALLOPURINOL) [Concomitant]
  11. IRON (FERROUS SULFATE) [Concomitant]
  12. HYDROCERINE [Concomitant]
  13. HYPEROMELLOSE (HYPROMELLOSE) [Concomitant]
  14. MENTHOL CREAM (METHYL SALICYLATE) [Concomitant]
  15. MIRALAX (MACROGOL) [Concomitant]
  16. LETAIRIS [Concomitant]
     Active Substance: AMBRISENTAN
     Indication: PULMONARY ARTERIAL HYPERTENSION
     Route: 048
     Dates: start: 20080624
  17. GLUCOTROL [Concomitant]
     Active Substance: GLIPIZIDE
  18. OCEAN (SODIUM CHLORIDE) [Concomitant]
  19. PRINIVIL (LISINOPRIL DIHYDRATE) [Concomitant]
  20. APRESOLINE HYDROCHLORIDE [Suspect]
     Active Substance: HYDRALAZINE HYDROCHLORIDE
     Indication: HYPERTENSION
     Route: 048
     Dates: start: 20110915
  21. ZESTRIL [Suspect]
     Active Substance: LISINOPRIL
     Indication: HYPERTENSION
     Route: 048
     Dates: start: 20120109
  22. PRILOSEC (OMEPRAZOLE) [Concomitant]
     Active Substance: OMEPRAZOLE MAGNESIUM
  23. DEMADEX [Suspect]
     Active Substance: TORSEMIDE
     Indication: OEDEMA PERIPHERAL
     Dosage: 60 MG (20 MG, 3 IN 1 D), ORAL
     Route: 048
     Dates: start: 20130701
  24. ULTRAM (TRAMADOL HYDROCHLORIDE) [Concomitant]
     Active Substance: TRAMADOL HYDROCHLORIDE
  25. VITAMIN C [Concomitant]
     Active Substance: ASCORBIC ACID
  26. NORVASC [Concomitant]
     Active Substance: AMLODIPINE BESYLATE
  27. ZYRTEC (CETRIZINE HC1) [Concomitant]
  28. TADALAFIL [Concomitant]
     Active Substance: TADALAFIL

REACTIONS (16)
  - Feeling abnormal [None]
  - Mitral valve incompetence [None]
  - Carotid arteriosclerosis [None]
  - Disease progression [None]
  - Ischaemia [None]
  - Ataxia [None]
  - Vertigo [None]
  - Dizziness [None]
  - Chronic kidney disease [None]
  - Cardiac failure congestive [None]
  - Accelerated hypertension [None]
  - Carotid artery stenosis [None]
  - Acute myocardial infarction [None]
  - Tricuspid valve incompetence [None]
  - Pulmonary hypertension [None]
  - Nausea [None]

NARRATIVE: CASE EVENT DATE: 201409
